FAERS Safety Report 21007498 (Version 3)
Quarter: 2022Q4

REPORT INFORMATION
  Report Type: Spontaneous
  Country: US (occurrence: US)
  Receive Date: 20220626
  Receipt Date: 20221019
  Transmission Date: 20230112
  Serious: Yes (Other)
  Sender: FDA-Public Use
  Company Number: US-JNJFOC-20220640360

PATIENT
  Age: 67 Year
  Sex: Female

DRUGS (13)
  1. ELMIRON [Suspect]
     Active Substance: PENTOSAN POLYSULFATE SODIUM
     Indication: Cystitis interstitial
     Route: 048
     Dates: start: 201409
  2. ELMIRON [Suspect]
     Active Substance: PENTOSAN POLYSULFATE SODIUM
     Dosage: 100 MG 3 TIMES DAILY
     Route: 048
     Dates: start: 201707, end: 201806
  3. ELMIRON [Suspect]
     Active Substance: PENTOSAN POLYSULFATE SODIUM
     Dosage: 100 MG 3 TIMES DAILY
     Route: 048
     Dates: start: 201807, end: 202004
  4. ELMIRON [Suspect]
     Active Substance: PENTOSAN POLYSULFATE SODIUM
     Route: 048
     Dates: start: 202005, end: 202010
  5. HYDROXYZINE [Concomitant]
     Active Substance: HYDROXYZINE HYDROCHLORIDE
     Indication: Anxiety
     Dates: start: 201601
  6. HYDROXYZINE [Concomitant]
     Active Substance: HYDROXYZINE HYDROCHLORIDE
     Indication: Sleep disorder
  7. HYDROXYZINE HYDROCHLORIDE [Concomitant]
     Active Substance: HYDROXYZINE HYDROCHLORIDE
     Indication: Anxiety
     Dates: start: 201901
  8. HYDROXYZINE HYDROCHLORIDE [Concomitant]
     Active Substance: HYDROXYZINE HYDROCHLORIDE
     Indication: Sleep disorder
  9. AMITRIPTYLINE [Concomitant]
     Active Substance: AMITRIPTYLINE
     Indication: Muscle relaxant therapy
     Dates: start: 201901
  10. LINZESS [Concomitant]
     Active Substance: LINACLOTIDE
     Indication: Anxiety
     Dates: start: 201901
  11. LINZESS [Concomitant]
     Active Substance: LINACLOTIDE
     Indication: Sleep disorder
  12. CYCLOBENZAPRINE [Concomitant]
     Active Substance: CYCLOBENZAPRINE
     Indication: Muscle relaxant therapy
     Dates: start: 201901
  13. GABAPENTIN [Concomitant]
     Active Substance: GABAPENTIN
     Indication: Neuralgia
     Dates: start: 2017

REACTIONS (16)
  - Retinal detachment [Not Recovered/Not Resolved]
  - Age-related macular degeneration [Unknown]
  - Retinal pigmentation [Unknown]
  - Haemorrhage [Unknown]
  - Haematochezia [Unknown]
  - Chest pain [Unknown]
  - Weight increased [Unknown]
  - Discomfort [Unknown]
  - Periorbital swelling [Unknown]
  - Myalgia [Unknown]
  - Feeling cold [Unknown]
  - Colitis [Unknown]
  - Constipation [Unknown]
  - Dizziness [Unknown]
  - Pruritus [Unknown]
  - Arthralgia [Unknown]

NARRATIVE: CASE EVENT DATE: 20190101
